FAERS Safety Report 5651466-0 (Version None)
Quarter: 2008Q1

REPORT INFORMATION
  Report Type: 
  Country: None (occurrence: None)
  Receive Date: 20080305
  Receipt Date: 20060310
  Transmission Date: 20080703
  Serious: Yes (Death)
  Sender: FDA-Public Use
  Company Number: FI-WYE-H01066807

PATIENT
  Age: 24 Year
  Sex: Male

DRUGS (2)
  1. TIGECYCLINE [Suspect]
     Indication: STENOTROPHOMONAS INFECTION
     Dosage: UNKNOWN
     Route: 042
     Dates: start: 20051202, end: 20051215
  2. TIGECYCLINE [Suspect]
     Indication: PNEUMONIA

REACTIONS (1)
  - RESPIRATORY FAILURE [None]
